FAERS Safety Report 5986765-6 (Version None)
Quarter: 2008Q4

REPORT INFORMATION
  Report Type: 
  Country: None (occurrence: None)
  Receive Date: 20081209
  Receipt Date: 20080905
  Transmission Date: 20090506
  Serious: No
  Sender: FDA-Public Use
  Company Number: US-AMGEN-KDL306158

PATIENT
  Sex: Female

DRUGS (3)
  1. ENBREL [Suspect]
     Indication: RHEUMATOID ARTHRITIS
     Route: 058
     Dates: start: 20080328
  2. PLAQUENIL [Concomitant]
  3. METHOTREXATE [Concomitant]
     Route: 048

REACTIONS (3)
  - ERYTHEMA [None]
  - LOCAL SWELLING [None]
  - NASAL DISCOMFORT [None]
